FAERS Safety Report 12634345 (Version 3)
Quarter: 2016Q3

REPORT INFORMATION
  Report Type: Spontaneous
  Country: US (occurrence: US)
  Receive Date: 20160808
  Receipt Date: 20160921
  Transmission Date: 20161109
  Serious: No
  Sender: FDA-Public Use
  Company Number: US-GLAXOSMITHKLINE-US2016113697

PATIENT
  Sex: Female

DRUGS (5)
  1. ALBUTEROL NEBULIZER [Concomitant]
     Active Substance: ALBUTEROL
  2. SINGULAIR [Concomitant]
     Active Substance: MONTELUKAST SODIUM
  3. PROAIR HFA [Concomitant]
     Active Substance: ALBUTEROL SULFATE
  4. ADVAIR DISKUS [Suspect]
     Active Substance: FLUTICASONE PROPIONATE\SALMETEROL XINAFOATE
     Indication: PRODUCT USED FOR UNKNOWN INDICATION
     Dosage: 1 PUFF(S), BID
     Route: 055
  5. FLONASE [Concomitant]
     Active Substance: FLUTICASONE PROPIONATE

REACTIONS (4)
  - Product quality issue [Unknown]
  - Retching [Recovered/Resolved]
  - Choking sensation [Recovered/Resolved]
  - Drug ineffective [Unknown]
